FAERS Safety Report 12750617 (Version 3)
Quarter: 2016Q3

REPORT INFORMATION
  Report Type: Report from Study
  Country: DE (occurrence: DE)
  Receive Date: 20160915
  Receipt Date: 20160919
  Transmission Date: 20161109
  Serious: Yes (Other)
  Sender: FDA-Public Use
  Company Number: DE-PFIZER INC-2016416168

PATIENT
  Age: 53 Year
  Sex: Male
  Weight: 118 kg

DRUGS (6)
  1. ATRA [Suspect]
     Active Substance: TRETINOIN
     Dosage: 90 MG, DAILY
     Dates: start: 20160724, end: 20160726
  2. IDARUBICIN [Suspect]
     Active Substance: IDARUBICIN
     Dosage: 27.60 MG, DAILY
     Dates: start: 20160719, end: 20160723
  3. ATRA [Suspect]
     Active Substance: TRETINOIN
     Dosage: 30 MG, DAILY
     Dates: start: 20160727, end: 20160808
  4. ETOPOSIDE. [Suspect]
     Active Substance: ETOPOSIDE
     Dosage: 230 MG, DAILY
     Dates: start: 20160719, end: 20160721
  5. GEMTUZUMAB OZOGAMICIN [Suspect]
     Active Substance: GEMTUZUMAB OZOGAMICIN
     Dosage: 6.90 MG, DAILY
     Dates: start: 20160719, end: 20160719
  6. CYTARABINE. [Suspect]
     Active Substance: CYTARABINE
     Dosage: 230 MG, DAILY
     Dates: start: 20160719, end: 20160725

REACTIONS (1)
  - Pancytopenia [Recovered/Resolved]

NARRATIVE: CASE EVENT DATE: 20160823
